FAERS Safety Report 5061493-2 (Version None)
Quarter: 2006Q3

REPORT INFORMATION
  Report Type: 
  Country: None (occurrence: None)
  Receive Date: 20060721
  Receipt Date: 20060711
  Transmission Date: 20061208
  Serious: Yes (Hospitalization, Other)
  Sender: FDA-Public Use
  Company Number: HQWYE554726JAN04

PATIENT
  Age: 55 Year
  Sex: Female
  Weight: 61.8 kg

DRUGS (7)
  1. MYLOTARG [Suspect]
     Indication: ACUTE MYELOID LEUKAEMIA
     Dosage: SEE IMAGE
     Route: 042
     Dates: start: 20040114, end: 20040114
  2. MYLOTARG [Suspect]
     Indication: ACUTE MYELOID LEUKAEMIA
     Dosage: SEE IMAGE
     Route: 042
     Dates: start: 20040204, end: 20040204
  3. PROGRAF [Concomitant]
  4. VORICONAZOLE (VORICONAZOLE) [Concomitant]
  5. ACYCLOVIR [Concomitant]
  6. ALLOPURINOL [Concomitant]
  7. SEPTRA [Concomitant]

REACTIONS (6)
  - BIOPSY BONE MARROW ABNORMAL [None]
  - DISEASE RECURRENCE [None]
  - FEBRILE NEUTROPENIA [None]
  - IMMUNOSUPPRESSION [None]
  - PANCYTOPENIA [None]
  - STEM CELL TRANSPLANT [None]
